FAERS Safety Report 8287554-2 (Version None)
Quarter: 2012Q2

REPORT INFORMATION
  Report Type: 
  Country: None (occurrence: None)
  Receive Date: 20120411
  Receipt Date: 20120411
  Transmission Date: 20120825
  Serious: Yes (Other)
  Sender: FDA-Public Use
  Company Number: None

PATIENT
  Sex: Male

DRUGS (2)
  1. AZITHROMYCIN [Suspect]
     Indication: CHRONIC OBSTRUCTIVE PULMONARY DISEASE
     Dosage: 500 MG QD IV
     Route: 042
     Dates: start: 20120319, end: 20120410
  2. AZITHROMYCIN [Suspect]
     Indication: PNEUMONIA
     Dosage: 500 MG QD IV
     Route: 042
     Dates: start: 20120319, end: 20120410

REACTIONS (2)
  - POTENTIATING DRUG INTERACTION [None]
  - ANGIOEDEMA [None]
